FAERS Safety Report 17246412 (Version 1)
Quarter: 2020Q1

REPORT INFORMATION
  Report Type: Spontaneous
  Country: SE (occurrence: SE)
  Receive Date: 20200108
  Receipt Date: 20200108
  Transmission Date: 20200409
  Serious: Yes (Hospitalization)
  Sender: FDA-Public Use
  Company Number: SE-PFIZER INC-2020006307

PATIENT
  Age: 41 Year
  Sex: Female

DRUGS (2)
  1. XANOR [Suspect]
     Active Substance: ALPRAZOLAM
     Dosage: 40 MG, UNK
     Route: 048
     Dates: start: 20190214, end: 20190214
  2. PROPAVAN [Suspect]
     Active Substance: PROPIOMAZINE
     Dosage: 1250 MG, UNK
     Route: 048
     Dates: start: 20190214, end: 20190214

REACTIONS (2)
  - Suicidal ideation [Unknown]
  - Intentional overdose [Unknown]

NARRATIVE: CASE EVENT DATE: 20190214
